FAERS Safety Report 12508829 (Version 2)
Quarter: 2016Q3

REPORT INFORMATION
  Report Type: Spontaneous
  Country: US (occurrence: US)
  Receive Date: 20160629
  Receipt Date: 20160711
  Transmission Date: 20161109
  Serious: No
  Sender: FDA-Public Use
  Company Number: US-009507513-1606USA012716

PATIENT
  Sex: Female

DRUGS (1)
  1. NEXPLANON [Suspect]
     Active Substance: ETONOGESTREL
     Indication: CONTRACEPTION
     Dosage: 1 DF REPORTED AS A ROD, EVERY 3 YEARS
     Route: 059

REACTIONS (3)
  - Headache [Unknown]
  - Difficulty removing drug implant [Recovered/Resolved]
  - Implant site fibrosis [Unknown]
